FAERS Safety Report 8544043-5 (Version None)
Quarter: 2012Q3

REPORT INFORMATION
  Report Type: 
  Country: None (occurrence: None)
  Receive Date: 20120727
  Receipt Date: 20120718
  Transmission Date: 20120928
  Serious: Yes (Hospitalization)
  Sender: FDA-Public Use
  Company Number: NO-009507513-1207NOR010904

PATIENT

DRUGS (6)
  1. WELLBUTRIN [Suspect]
     Indication: DEPRESSION
     Route: 048
     Dates: start: 20120626, end: 20120701
  2. OXAZEPAM [Concomitant]
     Indication: ANXIETY
     Dosage: 15 MG UP TO 3 TIMES A DAY
     Route: 048
  3. TRILAFON [Suspect]
     Indication: DEPRESSION
     Route: 048
     Dates: start: 20120626, end: 20120701
  4. CITALOPRAM HYDROBROMIDE [Concomitant]
     Indication: DEPRESSION
     Route: 048
  5. TRAMADOL HCL [Concomitant]
     Indication: PAIN
     Dosage: 50 MG UP TO 3 TIMES A DAY
     Route: 048
  6. LEVOTHYROXINE SODIUM [Concomitant]
     Indication: METABOLIC DISORDER
     Dosage: 125 MICROG/DAY ONCE DAILY, 5 OF 7 DAYS A WEEK.
     Route: 048

REACTIONS (1)
  - SUPRAVENTRICULAR TACHYCARDIA [None]
